FAERS Safety Report 21273551 (Version 1)
Quarter: 2022Q3

REPORT INFORMATION
  Report Type: Spontaneous
  Country: US (occurrence: None)
  Receive Date: 20220830
  Receipt Date: 20220830
  Transmission Date: 20221026
  Serious: No
  Sender: FDA-Public Use
  Company Number: None

PATIENT
  Age: 79 Year
  Sex: Male
  Weight: 70.67 kg

DRUGS (10)
  1. IBRANCE [Suspect]
     Active Substance: PALBOCICLIB
     Indication: Breast cancer male
     Dosage: 75MG  3W, 1W OFF ORAL?
     Route: 048
     Dates: start: 202204
  2. ATORVASTATIN CALCIUM [Concomitant]
     Active Substance: ATORVASTATIN CALCIUM
  3. DRONABINOL [Concomitant]
     Active Substance: DRONABINOL
  4. GLIMEPIRIDE [Concomitant]
     Active Substance: GLIMEPIRIDE
  5. LETROZOLE [Concomitant]
     Active Substance: LETROZOLE
  6. LEVEMIR [Concomitant]
     Active Substance: INSULIN DETEMIR
  7. LEVOTHYROXINE [Concomitant]
     Active Substance: LEVOTHYROXINE
  8. METOPROLOL [Concomitant]
     Active Substance: METOPROLOL
  9. CHONDROITIN SULFATE A\GLUCOSAMINE [Concomitant]
     Active Substance: CHONDROITIN SULFATE A\GLUCOSAMINE
  10. VITAMINS [Concomitant]
     Active Substance: VITAMINS

REACTIONS (1)
  - Hospice care [None]
